FAERS Safety Report 4870653-2 (Version None)
Quarter: 2005Q4

REPORT INFORMATION
  Report Type: 
  Country: None (occurrence: None)
  Receive Date: 20051228
  Receipt Date: 20051216
  Transmission Date: 20060501
  Serious: Yes (Life-Threatening, Other)
  Sender: FDA-Public Use
  Company Number: 2005169934

PATIENT
  Age: 67 Year
  Sex: Female

DRUGS (5)
  1. DOXAZOSIN MESYLATE [Suspect]
     Indication: ILL-DEFINED DISORDER
     Dosage: 2 MG (2 MG, DAILY), ORAL
     Route: 048
     Dates: start: 20000620
  2. DICLOFENAC SODIUM [Concomitant]
  3. CIPROFIBRATE (CIPROFIBRATE) [Concomitant]
  4. LACRI-LUBE (LANOLIN, MINERAL OIL LIGHT, PETROLATUM) [Concomitant]
  5. CO-PROXAMOL (DEXTROPROPOXYPHENE HYDROCHLORIDE, PARACETAMOL) [Concomitant]

REACTIONS (3)
  - DIZZINESS [None]
  - HALLUCINATION, VISUAL [None]
  - PHOTOPSIA [None]
